FAERS Safety Report 9462397 (Version 1)
Quarter: 2013Q3

REPORT INFORMATION
  Report Type: Report from Study
  Country: PE (occurrence: PE)
  Receive Date: 20130816
  Receipt Date: 20130816
  Transmission Date: 20140515
  Serious: Yes (Other)
  Sender: FDA-Public Use
  Company Number: PE-GILEAD-2013-0077200

PATIENT
  Age: 26 Year
  Sex: Male

DRUGS (7)
  1. EMTRICITABINE/TENOFOVIR DISOPROXIL FUMARATE [Suspect]
     Indication: PROPHYLAXIS AGAINST HIV INFECTION
     Dosage: UNK
     Dates: start: 20120224, end: 20130426
  2. BENZATHINE PENICILLIN [Concomitant]
     Indication: GENITAL ULCERATION
     Dosage: UNK
     Dates: start: 20121206, end: 20121206
  3. CIPROFLOXACIN [Concomitant]
     Indication: GENITAL ULCERATION
     Dosage: UNK
     Dates: start: 20121206, end: 20121206
  4. IBUPROFEN [Concomitant]
     Indication: WOUND
     Dosage: UNK
     Dates: start: 20130613, end: 20130615
  5. IBUPROFEN [Concomitant]
     Dosage: UNK
     Dates: start: 20130116, end: 20130122
  6. DICLOXACILLIN [Concomitant]
     Indication: WOUND
     Dosage: UNK
     Dates: start: 20130116, end: 20130122
  7. AMOXICILLIN [Concomitant]
     Indication: PHARYNGITIS
     Dosage: UNK
     Dates: start: 20130613, end: 20130615

REACTIONS (4)
  - Viral mutation identified [Unknown]
  - Viral mutation identified [Unknown]
  - HIV test positive [Unknown]
  - Viral mutation identified [Unknown]
